FAERS Safety Report 4628544-8 (Version None)
Quarter: 2005Q2

REPORT INFORMATION
  Report Type: 
  Country: None (occurrence: None)
  Receive Date: 20050404
  Receipt Date: 20050321
  Transmission Date: 20051028
  Serious: Yes (Hospitalization)
  Sender: FDA-Public Use
  Company Number: 2005CG00400

PATIENT
  Age: 73 Year
  Sex: Female

DRUGS (1)
  1. NOLVADEX [Suspect]
     Indication: BREAST CANCER
     Dates: start: 20030501

REACTIONS (2)
  - INTRACRANIAL PRESSURE INCREASED [None]
  - PAPILLOEDEMA [None]
